FAERS Safety Report 4715243-7 (Version None)
Quarter: 2005Q2

REPORT INFORMATION
  Report Type: 
  Country: None (occurrence: None)
  Receive Date: 20050630
  Receipt Date: 20050314
  Transmission Date: 20051028
  Serious: No
  Sender: FDA-Public Use
  Company Number: 213129

PATIENT
  Age: 58 Year
  Sex: Female
  Weight: 67 kg

DRUGS (1)
  1. AVASTIN [Suspect]
     Indication: UTERINE CANCER
     Dosage: 670 MG, 1/WEEK, INTRAVENOUS
     Route: 042
     Dates: start: 20041208, end: 20050315

REACTIONS (1)
  - HAEMATURIA [None]
